FAERS Safety Report 6078682-0 (Version None)
Quarter: 2009Q1

REPORT INFORMATION
  Report Type: 
  Country: None (occurrence: None)
  Receive Date: 20090216
  Receipt Date: 20090205
  Transmission Date: 20090719
  Serious: Yes (Death, Hospitalization)
  Sender: FDA-Public Use
  Company Number: AT-BAYER-200912584GPV

PATIENT
  Age: 81 Year
  Sex: Male

DRUGS (1)
  1. MABCAMPATH [Suspect]
     Indication: CHRONIC LYMPHOCYTIC LEUKAEMIA
     Route: 065
     Dates: start: 20040421, end: 20040611

REACTIONS (1)
  - GLIOBLASTOMA MULTIFORME [None]
